FAERS Safety Report 4360027-5 (Version None)
Quarter: 2004Q2

REPORT INFORMATION
  Report Type: 
  Country: None (occurrence: None)
  Receive Date: 20040513
  Receipt Date: 20040429
  Transmission Date: 20050107
  Serious: Yes (Hospitalization)
  Sender: FDA-Public Use
  Company Number: 2004-BP-03206BP

PATIENT
  Sex: Male

DRUGS (5)
  1. CATAPRES-TTS-3 [Suspect]
     Indication: HYPERTENSION
     Dosage: SEE IMAGE
     Route: 061
     Dates: start: 20040319, end: 20040319
  2. CATAPRES-TTS-3 [Suspect]
     Indication: HYPERTENSION
     Dosage: SEE IMAGE
     Route: 061
     Dates: start: 20040321, end: 20040321
  3. CATAPRES-TTS-3 [Suspect]
     Indication: HYPERTENSION
     Dosage: SEE IMAGE
     Route: 061
     Dates: start: 20040322, end: 20040322
  4. CATAPRES-TTS-3 [Suspect]
     Indication: HYPERTENSION
     Dosage: SEE IMAGE
     Route: 061
     Dates: start: 20040323, end: 20040323
  5. CATAPRES-TTS-3 [Suspect]
     Indication: HYPERTENSION
     Dosage: SEE IMAGE
     Route: 061
     Dates: start: 20040324, end: 20040405

REACTIONS (2)
  - BLOOD PRESSURE DECREASED [None]
  - MEDICATION ERROR [None]
